FAERS Safety Report 6354385-X (Version None)
Quarter: 2009Q3

REPORT INFORMATION
  Report Type: 
  Country: None (occurrence: None)
  Receive Date: 20090909
  Receipt Date: 20090826
  Transmission Date: 20100115
  Serious: Yes (Other)
  Sender: FDA-Public Use
  Company Number: 8051021

PATIENT

DRUGS (1)
  1. KEPPRA [Suspect]

REACTIONS (1)
  - GASTRIC BYPASS [None]
